FAERS Safety Report 25055781 (Version 2)
Quarter: 2025Q1

REPORT INFORMATION
  Report Type: Spontaneous
  Country: US (occurrence: US)
  Receive Date: 20250309
  Receipt Date: 20250324
  Transmission Date: 20250409
  Serious: No
  Sender: SANOFI AVENTIS
  Company Number: US-SA-2025SA068060

PATIENT
  Age: 59 Year
  Sex: Female
  Weight: 54.422 kg

DRUGS (13)
  1. CEREZYME [Suspect]
     Active Substance: IMIGLUCERASE
     Indication: Gaucher^s disease
     Dosage: 3200 UN Q2W
     Route: 042
     Dates: start: 20080128
  2. EPINEPHRINE [Concomitant]
     Active Substance: EPINEPHRINE
  3. STERILE WATER [Concomitant]
     Active Substance: WATER
  4. LEVOCETIRIZINE DIHYDROCHLORIDE [Concomitant]
     Active Substance: LEVOCETIRIZINE DIHYDROCHLORIDE
  5. PROLIA [Concomitant]
     Active Substance: DENOSUMAB
  6. SODIUM CHLORIDE [Concomitant]
     Active Substance: SODIUM CHLORIDE
  7. VITAMIN D3 [Concomitant]
     Active Substance: CHOLECALCIFEROL
  8. VITAMINS [Concomitant]
     Active Substance: VITAMINS
  9. BIOTIN [Concomitant]
     Active Substance: BIOTIN
  10. XANAX [Concomitant]
     Active Substance: ALPRAZOLAM
  11. CALCIUM [Concomitant]
     Active Substance: CALCIUM
  12. ONDANSETRON HYDROCHLORIDE [Concomitant]
     Active Substance: ONDANSETRON HYDROCHLORIDE
  13. SODIUM CHLORIDE [Concomitant]
     Active Substance: SODIUM CHLORIDE

REACTIONS (3)
  - Fall [Unknown]
  - Hand fracture [Unknown]
  - Wrist fracture [Unknown]
